FAERS Safety Report 25407922 (Version 1)
Quarter: 2025Q2

REPORT INFORMATION
  Report Type: Spontaneous
  Country: US (occurrence: US)
  Receive Date: 20250606
  Receipt Date: 20250606
  Transmission Date: 20250716
  Serious: Yes (Death)
  Sender: PFIZER
  Company Number: US-PFIZER INC-202500064272

PATIENT
  Age: 41 Year
  Sex: Male

DRUGS (1)
  1. TUKYSA [Suspect]
     Active Substance: TUCATINIB
     Indication: Colon cancer metastatic
     Dosage: 300 MG, 2X/DAY (TWO 150MG TABLETS TWICE DAILY/FOR 21 DAYS/150MG, TWO TABLETS TWO TIMES A DAY FOR 21

REACTIONS (2)
  - Death [Fatal]
  - Off label use [Unknown]

NARRATIVE: CASE EVENT DATE: 20250324
